FAERS Safety Report 4450018-8 (Version None)
Quarter: 2004Q3

REPORT INFORMATION
  Report Type: 
  Country: None (occurrence: None)
  Receive Date: 20040915
  Receipt Date: 20040901
  Transmission Date: 20050211
  Serious: Yes (Hospitalization)
  Sender: FDA-Public Use
  Company Number: HQWYE823102SEP04

PATIENT
  Age: 59 Year
  Sex: Male

DRUGS (9)
  1. ENBREL [Suspect]
     Indication: ANKYLOSING SPONDYLITIS
     Route: 058
     Dates: start: 20040707, end: 20040728
  2. ENBREL [Suspect]
     Route: 058
     Dates: start: 20040101, end: 20040101
  3. ARTHROTEC [Concomitant]
     Dosage: UNKNOWN DOSE AND FREQUENCY
  4. MORPHINE SULFATE [Concomitant]
     Dosage: UNKNOWN DOSE AND FREQUENCY
  5. BELOC [Concomitant]
     Dosage: UNKNOWN DOSE AND FREQUENCY
  6. NEXIUM [Concomitant]
     Dosage: UNKNOWN DOSE AND FREQUENCY
  7. ACETAMINOPHEN [Concomitant]
     Dosage: UNKNOWN DOSE AND FREQUENCY
  8. LEXOTANIL [Concomitant]
     Dosage: UNKNOWN DOSE AND FREQUENCY
  9. REMERON [Concomitant]
     Dosage: UNKNOWN DOSE AND FREQUENCY

REACTIONS (2)
  - LOCALISED OSTEOARTHRITIS [None]
  - POSTOPERATIVE INFECTION [None]
